FAERS Safety Report 25592511 (Version 1)
Quarter: 2025Q3

REPORT INFORMATION
  Report Type: Spontaneous
  Country: ID (occurrence: ID)
  Receive Date: 20250722
  Receipt Date: 20250722
  Transmission Date: 20251020
  Serious: Yes (Death, Hospitalization)
  Sender: MYLAN
  Company Number: ID-MYLANLABS-2025M1061258

PATIENT
  Age: 5 Year
  Sex: Male

DRUGS (2)
  1. PHENYTOIN [Suspect]
     Active Substance: PHENYTOIN
     Indication: Product used for unknown indication
  2. MEROPENEM [Suspect]
     Active Substance: MEROPENEM
     Indication: Product used for unknown indication

REACTIONS (3)
  - Stevens-Johnson syndrome [Fatal]
  - Obliterative bronchiolitis [Fatal]
  - Respiratory failure [Fatal]
